FAERS Safety Report 14610303 (Version 1)
Quarter: 2018Q1

REPORT INFORMATION
  Report Type: Spontaneous
  Country: US (occurrence: US)
  Receive Date: 20180307
  Receipt Date: 20180307
  Transmission Date: 20180509
  Serious: Yes (Other)
  Sender: FDA-Public Use
  Company Number: US-GALDERMA-US18003114

PATIENT
  Age: 15 Year
  Sex: Female

DRUGS (1)
  1. EPIDUO [Suspect]
     Active Substance: ADAPALENE\BENZOYL PEROXIDE
     Indication: ACNE
     Dosage: 0.1% / 2.5%
     Route: 061
     Dates: start: 20180218, end: 20180220

REACTIONS (5)
  - Sensation of foreign body [Recovered/Resolved]
  - Swelling face [Recovered/Resolved]
  - Erythema [Recovering/Resolving]
  - Hypersensitivity [Recovering/Resolving]
  - Pruritus [Recovering/Resolving]

NARRATIVE: CASE EVENT DATE: 20180220
